FAERS Safety Report 16242251 (Version 4)
Quarter: 2019Q4

REPORT INFORMATION
  Report Type: Spontaneous
  Country: CA (occurrence: CA)
  Receive Date: 20190426
  Receipt Date: 20191106
  Transmission Date: 20200122
  Serious: Yes (Life-Threatening, Other)
  Sender: FDA-Public Use
  Company Number: CA-TEVA-2019-CA-1041054

PATIENT
  Age: 54 Year
  Sex: Female

DRUGS (18)
  1. DICLOFENAC [Suspect]
     Active Substance: DICLOFENAC
     Indication: PRODUCT USED FOR UNKNOWN INDICATION
     Dosage: 100 MILLIGRAM DAILY;
     Route: 048
  2. CODEINE [Suspect]
     Active Substance: CODEINE
     Indication: PAIN
     Route: 065
  3. DICLOFENAC [Suspect]
     Active Substance: DICLOFENAC
     Indication: PAIN
     Route: 048
  4. MORPHINE [Suspect]
     Active Substance: MORPHINE
     Indication: PAIN
  5. OXYCONTIN [Suspect]
     Active Substance: OXYCODONE HYDROCHLORIDE
     Indication: PAIN
     Route: 065
  6. ZOLMITRIPTAN. [Concomitant]
     Active Substance: ZOLMITRIPTAN
     Indication: MIGRAINE
     Route: 048
  7. DICLOFENAC [Concomitant]
     Active Substance: DICLOFENAC
  8. HYDROCODONE [Suspect]
     Active Substance: HYDROCODONE
     Indication: PAIN
     Route: 065
  9. CYCLOPRINE [Concomitant]
  10. ACETAMINOPHEN. [Suspect]
     Active Substance: ACETAMINOPHEN
     Indication: PAIN
     Route: 065
  11. BUTRANS [Suspect]
     Active Substance: BUPRENORPHINE
     Indication: PAIN
     Route: 065
  12. TYLENOL WITH CODEINE [Suspect]
     Active Substance: ACETAMINOPHEN\CODEINE PHOSPHATE
     Indication: PAIN
     Route: 065
  13. CAMBIA [Suspect]
     Active Substance: DICLOFENAC POTASSIUM
     Indication: PAIN
     Route: 065
  14. CELEBREX [Suspect]
     Active Substance: CELECOXIB
     Indication: PAIN
     Route: 065
  15. CYCLOBENZAPRINE. [Concomitant]
     Active Substance: CYCLOBENZAPRINE
     Indication: PRODUCT USED FOR UNKNOWN INDICATION
     Route: 065
  16. DICLOFENAC [Suspect]
     Active Substance: DICLOFENAC
     Route: 065
  17. MORPHINE [Suspect]
     Active Substance: MORPHINE
     Indication: PRODUCT USED FOR UNKNOWN INDICATION
     Route: 065
  18. ACETAMINOPHEN AND CODEINE [Suspect]
     Active Substance: ACETAMINOPHEN\CODEINE PHOSPHATE
     Indication: PAIN
     Route: 065

REACTIONS (18)
  - Condition aggravated [Unknown]
  - Mental impairment [Unknown]
  - Suicidal ideation [Unknown]
  - Mental disorder [Unknown]
  - Angioedema [Recovering/Resolving]
  - Sneezing [Recovering/Resolving]
  - Dysphagia [Unknown]
  - Gastric ulcer [Unknown]
  - Urticaria [Recovering/Resolving]
  - Back pain [Unknown]
  - Confusional state [Unknown]
  - Overweight [Unknown]
  - Conjunctivitis [Recovering/Resolving]
  - Pruritus [Recovering/Resolving]
  - Arthralgia [Unknown]
  - Gastric disorder [Unknown]
  - Overdose [Unknown]
  - Bedridden [Unknown]
